FAERS Safety Report 20700433 (Version 1)
Quarter: 2022Q2

REPORT INFORMATION
  Report Type: Spontaneous
  Country: IN (occurrence: IN)
  Receive Date: 20220412
  Receipt Date: 20220412
  Transmission Date: 20220720
  Serious: Yes (Other)
  Sender: FDA-Public Use
  Company Number: IN-PFIZER INC-2021728887

PATIENT
  Age: 73 Year
  Sex: Male

DRUGS (6)
  1. DACOMITINIB [Suspect]
     Active Substance: DACOMITINIB
     Indication: Lung adenocarcinoma
     Dosage: 30 MG, 1X/DAY
     Route: 048
     Dates: start: 20210409, end: 202104
  2. DACOMITINIB [Suspect]
     Active Substance: DACOMITINIB
     Dosage: 45 MG, 1X/DAY (R/A ONCE MONTH OR SOS)
     Route: 048
     Dates: start: 20210428, end: 202110
  3. TELNASE [Concomitant]
     Dosage: 20 MG, 1X/DAY
  4. FOLVITE [FOLIC ACID] [Concomitant]
     Dosage: 5 MG, 1X/DAY
  5. PAN [Concomitant]
     Dosage: UNK, 1X/DAY (40 1 OD BBF)
  6. MEGESTROL ACETATE [Concomitant]
     Active Substance: MEGESTROL ACETATE
     Dosage: 80 MG
     Route: 048

REACTIONS (3)
  - Second primary malignancy [Unknown]
  - Neoplasm malignant [Unknown]
  - Bladder disorder [Unknown]

NARRATIVE: CASE EVENT DATE: 20211001
